FAERS Safety Report 19586223 (Version 2)
Quarter: 2022Q2

REPORT INFORMATION
  Report Type: Report from Study
  Country: ES (occurrence: None)
  Receive Date: 20210721
  Receipt Date: 20220413
  Transmission Date: 20220721
  Serious: Yes (Other)
  Sender: FDA-Public Use
  Company Number: ES-ROCHE-2869860

PATIENT
  Age: 56 Year
  Sex: Male
  Weight: 84 kg

DRUGS (5)
  1. ATEZOLIZUMAB [Suspect]
     Active Substance: ATEZOLIZUMAB
     Indication: Chronic myeloid leukaemia
     Route: 048
     Dates: start: 20210421, end: 20210505
  2. ATEZOLIZUMAB [Suspect]
     Active Substance: ATEZOLIZUMAB
     Route: 042
     Dates: start: 20210421, end: 20210421
  3. ATEZOLIZUMAB [Suspect]
     Active Substance: ATEZOLIZUMAB
     Route: 048
     Dates: start: 20210505, end: 20210505
  4. BOSULIF [Suspect]
     Active Substance: BOSUTINIB MONOHYDRATE
     Indication: Chronic myeloid leukaemia
     Route: 048
     Dates: start: 20210317, end: 20210518
  5. BOSULIF [Suspect]
     Active Substance: BOSUTINIB MONOHYDRATE
     Route: 048
     Dates: start: 20210421

REACTIONS (1)
  - Hepatotoxicity [Recovering/Resolving]

NARRATIVE: CASE EVENT DATE: 20210519
